FAERS Safety Report 11682815 (Version 2)
Quarter: 2015Q4

REPORT INFORMATION
  Report Type: Spontaneous
  Country: CA (occurrence: CA)
  Receive Date: 20151029
  Receipt Date: 20151109
  Transmission Date: 20160304
  Serious: Yes (Death, Hospitalization)
  Sender: FDA-Public Use
  Company Number: CA-009507513-1510CAN013551

PATIENT
  Sex: Female
  Weight: 77 kg

DRUGS (1)
  1. KEYTRUDA [Suspect]
     Active Substance: PEMBROLIZUMAB
     Indication: MALIGNANT MELANOMA
     Dosage: 154 MG, Q3W
     Route: 042
     Dates: start: 20151008, end: 20151028

REACTIONS (4)
  - Pain management [Recovering/Resolving]
  - Disease progression [Recovering/Resolving]
  - Nausea [Recovering/Resolving]
  - Death [Fatal]

NARRATIVE: CASE EVENT DATE: 2015
